FAERS Safety Report 14704561 (Version 3)
Quarter: 2020Q1

REPORT INFORMATION
  Report Type: Spontaneous
  Country: US (occurrence: US)
  Receive Date: 20180402
  Receipt Date: 20200131
  Transmission Date: 20200409
  Serious: No
  Sender: FDA-Public Use
  Company Number: US-PFIZER INC-2018130721

PATIENT
  Age: 74 Year
  Sex: Female

DRUGS (1)
  1. XELJANZ [Suspect]
     Active Substance: TOFACITINIB CITRATE
     Dosage: 5 MG, UNK

REACTIONS (7)
  - Urticaria [Unknown]
  - Cerebral disorder [Unknown]
  - Decreased appetite [Unknown]
  - Infection [Unknown]
  - Thinking abnormal [Unknown]
  - Rash [Unknown]
  - Frequent bowel movements [Unknown]
